FAERS Safety Report 18435650 (Version 8)
Quarter: 2023Q1

REPORT INFORMATION
  Report Type: Other
  Country: DE (occurrence: None)
  Receive Date: 20201028
  Receipt Date: 20230116
  Transmission Date: 20230417
  Serious: Yes (Hospitalization)
  Sender: FDA-Public Use
  Company Number: DE-ROCHE-2700237

PATIENT
  Age: 33 Year
  Sex: Female
  Weight: 65 kg

DRUGS (12)
  1. OCRELIZUMAB [Suspect]
     Active Substance: OCRELIZUMAB
     Indication: Relapsing multiple sclerosis
     Dosage: MOST RECENT DOSE PRIOR TO AE 23/MAR/2021
     Route: 042
     Dates: start: 20190819
  2. OCRELIZUMAB [Suspect]
     Active Substance: OCRELIZUMAB
     Route: 042
     Dates: start: 20190128, end: 20190211
  3. PFIZER-BIONTECH COVID-19 VACCINE [Concomitant]
     Active Substance: TOZINAMERAN
     Indication: COVID-19 immunisation
     Route: 030
     Dates: start: 20210701, end: 20210701
  4. PFIZER-BIONTECH COVID-19 VACCINE [Concomitant]
     Active Substance: TOZINAMERAN
     Route: 030
     Dates: start: 20210813, end: 20210813
  5. PFIZER-BIONTECH COVID-19 VACCINE [Concomitant]
     Active Substance: TOZINAMERAN
     Route: 030
     Dates: start: 20211208, end: 20211208
  6. NYSTALOCAL [Concomitant]
     Dosage: DEFINITION OF THE INTERVAL: AS REQUIRED
     Route: 067
  7. METAMIZOL [Concomitant]
     Active Substance: METAMIZOLE SODIUM
  8. CALCIUM\CHOLECALCIFEROL [Concomitant]
     Active Substance: CALCIUM\CHOLECALCIFEROL
  9. XYLOCAINE [Concomitant]
     Active Substance: LIDOCAINE HYDROCHLORIDE
     Indication: Neurodermatitis
     Dosage: DEFINITION OF THE INTERVAL: AS REQUIRED
     Route: 062
  10. CIMETIDIN [Concomitant]
     Route: 042
     Dates: start: 20200820
  11. RANITIDINE HYDROCHLORIDE [Concomitant]
     Active Substance: RANITIDINE HYDROCHLORIDE
     Route: 042
     Dates: start: 20190128, end: 20200820
  12. PANTOPRAZOLE [Concomitant]
     Active Substance: PANTOPRAZOLE
     Indication: Prophylaxis
     Route: 048
     Dates: start: 20201016

REACTIONS (7)
  - Sarcoidosis [Unknown]
  - Erythema nodosum [Unknown]
  - Crohn^s disease [Unknown]
  - Gastrooesophageal reflux disease [Unknown]
  - Liver disorder [Unknown]
  - Arthritis [Unknown]
  - Oral candidiasis [Unknown]

NARRATIVE: CASE EVENT DATE: 20201001
